FAERS Safety Report 16360028 (Version 2)
Quarter: 2019Q2

REPORT INFORMATION
  Report Type: Spontaneous
  Country: CL (occurrence: CL)
  Receive Date: 20190528
  Receipt Date: 20190605
  Transmission Date: 20190711
  Serious: Yes (Disabling, Other)
  Sender: FDA-Public Use
  Company Number: CL-ROCHE-2324227

PATIENT
  Age: 28 Year
  Sex: Female

DRUGS (4)
  1. OCREVUS [Suspect]
     Active Substance: OCRELIZUMAB
     Indication: OFF LABEL USE
  2. MABTHERA [Suspect]
     Active Substance: RITUXIMAB
     Indication: OFF LABEL USE
  3. OCREVUS [Suspect]
     Active Substance: OCRELIZUMAB
     Indication: MULTIPLE SCLEROSIS
     Dosage: SECOND DOSE IN JAN/2019
     Route: 065
     Dates: start: 201812
  4. MABTHERA [Suspect]
     Active Substance: RITUXIMAB
     Indication: MULTIPLE SCLEROSIS
     Dosage: LAST DOSE IN JUN/2018
     Route: 065
     Dates: start: 201712

REACTIONS (8)
  - Nuclear magnetic resonance imaging brain abnormal [Unknown]
  - Injury [Unknown]
  - Epistaxis [Unknown]
  - Hyperprolactinaemia [Unknown]
  - Anti-Muellerian hormone level decreased [Unknown]
  - Hypothalamo-pituitary disorder [Unknown]
  - Off label use [Unknown]
  - Intentional product use issue [Unknown]
